FAERS Safety Report 7135296-9 (Version None)
Quarter: 2010Q4

REPORT INFORMATION
  Report Type: 
  Country: None (occurrence: None)
  Receive Date: 20101203
  Receipt Date: 20101124
  Transmission Date: 20110411
  Serious: Yes (Other)
  Sender: FDA-Public Use
  Company Number: B0564275A

PATIENT
  Sex: Female
  Weight: 97 kg

DRUGS (4)
  1. LAPATINIB [Suspect]
     Indication: BREAST CANCER
     Dosage: 1000MG PER DAY
     Route: 048
     Dates: start: 20081208
  2. TRASTUZUMAB [Suspect]
     Indication: BREAST CANCER
     Dosage: 6MGK EVERY 3 WEEKS
     Route: 042
     Dates: start: 20081208
  3. SALBUTAMOL [Concomitant]
     Indication: ASTHMA
     Dosage: 200MCG AS REQUIRED
     Route: 055
     Dates: start: 20010101
  4. TAMOXIFEN CITRATE [Concomitant]
     Indication: BREAST CANCER
     Dosage: 20MG PER DAY
     Route: 048
     Dates: start: 20081010

REACTIONS (7)
  - ASTHMA [None]
  - CARDIAC FAILURE CONGESTIVE [None]
  - CONDITION AGGRAVATED [None]
  - DYSPNOEA [None]
  - DYSPNOEA EXERTIONAL [None]
  - EJECTION FRACTION DECREASED [None]
  - MOBILITY DECREASED [None]
